FAERS Safety Report 9131089 (Version 12)
Quarter: 2015Q2

REPORT INFORMATION
  Report Type: Report from Study
  Country: FR (occurrence: FR)
  Receive Date: 20130301
  Receipt Date: 20150522
  Transmission Date: 20150821
  Serious: Yes (Hospitalization, Other)
  Sender: FDA-Public Use
  Company Number: FR-SANOFI-AVENTIS-2013SA019990

PATIENT
  Age: 78 Year
  Sex: Male
  Weight: 77 kg

DRUGS (12)
  1. KARDEGIC [Concomitant]
     Active Substance: ASPIRIN LYSINE
     Indication: PROPHYLAXIS
     Route: 048
     Dates: start: 1980
  2. PREDNISONE. [Suspect]
     Active Substance: PREDNISONE
     Indication: PROSTATE CANCER METASTATIC
     Route: 048
     Dates: start: 20121207, end: 20130208
  3. KETOPROFENE [Concomitant]
     Active Substance: KETOPROFEN
     Indication: PROPHYLAXIS
     Route: 061
     Dates: start: 2008
  4. EUPANTOL [Concomitant]
     Active Substance: PANTOPRAZOLE SODIUM
     Indication: PROPHYLAXIS
     Route: 048
     Dates: start: 20121207
  5. CABAZITAXEL [Suspect]
     Active Substance: CABAZITAXEL
     Indication: PROSTATE CANCER METASTATIC
     Route: 042
     Dates: start: 20130208, end: 20130208
  6. CILAZAPRIL [Concomitant]
     Active Substance: CILAZAPRIL ANHYDROUS
     Indication: PROPHYLAXIS
     Route: 048
     Dates: start: 1980
  7. GOSERELIN [Concomitant]
     Active Substance: GOSERELIN
     Route: 058
     Dates: start: 201208
  8. ESOMEPRAZOLE [Concomitant]
     Active Substance: ESOMEPRAZOLE
     Indication: PROPHYLAXIS
     Route: 048
     Dates: start: 1990
  9. TETRAZEPAM [Concomitant]
     Active Substance: TETRAZEPAM
     Indication: PROPHYLAXIS
     Route: 048
     Dates: start: 20130118
  10. EMLA [Concomitant]
     Active Substance: LIDOCAINE\PRILOCAINE
     Indication: PROPHYLAXIS
     Route: 062
     Dates: start: 20121207
  11. CABAZITAXEL [Suspect]
     Active Substance: CABAZITAXEL
     Indication: PROSTATE CANCER METASTATIC
     Route: 042
     Dates: start: 20121207, end: 20121207
  12. TETRAZEPAM [Concomitant]
     Active Substance: TETRAZEPAM
     Indication: PROPHYLAXIS
     Route: 048
     Dates: start: 201210

REACTIONS (5)
  - Acute coronary syndrome [Recovered/Resolved]
  - Rectal haemorrhage [Recovered/Resolved]
  - Ischaemic stroke [Recovered/Resolved]
  - Staphylococcal sepsis [Recovered/Resolved]
  - Haematuria [Recovered/Resolved]

NARRATIVE: CASE EVENT DATE: 20130221
